FAERS Safety Report 10012728 (Version 2)
Quarter: 2014Q2

REPORT INFORMATION
  Report Type: Report from Study
  Country: US (occurrence: US)
  Receive Date: 20140314
  Receipt Date: 20140411
  Transmission Date: 20141212
  Serious: Yes (Hospitalization, Other)
  Sender: FDA-Public Use
  Company Number: US-ACTELION-A-US2014-95880

PATIENT
  Age: 80 Year
  Sex: Female

DRUGS (10)
  1. TRACLEER [Suspect]
     Indication: PULMONARY ARTERIAL HYPERTENSION
     Dosage: 125 MG BID
     Route: 048
     Dates: start: 200709
  2. TRACLEER [Suspect]
     Dosage: 62.5 MG BID
     Route: 048
     Dates: start: 200706, end: 200709
  3. COUMADIN [Concomitant]
     Dosage: 10 MG ALTERNATING WITH 7.5 MG
  4. CARDIZEM CD [Concomitant]
     Dosage: 120 PO BID
  5. IRON SULFATE [Concomitant]
     Dosage: 325 MG QD
  6. SYNTHROID [Concomitant]
     Dosage: 175 MCG UNK
  7. LOVAZA [Concomitant]
  8. OXYCODONE [Concomitant]
  9. RYTHMOL [Concomitant]
     Dosage: 225 MG BID
  10. HYDROCHLOROTHIAZIDE [Concomitant]
     Dosage: 25 MG QD

REACTIONS (6)
  - Inflammation [Not Recovered/Not Resolved]
  - Liver function test abnormal [Not Recovered/Not Resolved]
  - Thoracic vertebral fracture [Unknown]
  - Back pain [Unknown]
  - Musculoskeletal chest pain [Unknown]
  - Atrial fibrillation [Recovered/Resolved]
